FAERS Safety Report 8207530-5 (Version None)
Quarter: 2012Q1

REPORT INFORMATION
  Report Type: 
  Country: None (occurrence: None)
  Receive Date: 20120314
  Receipt Date: 20120305
  Transmission Date: 20120608
  Serious: Yes (Other)
  Sender: FDA-Public Use
  Company Number: US-BRISTOL-MYERS SQUIBB COMPANY-16432460

PATIENT
  Age: 61 Year
  Sex: Female
  Weight: 65 kg

DRUGS (5)
  1. METOPROLOL SUCCINATE [Concomitant]
  2. COUMADIN [Suspect]
     Indication: PULMONARY EMBOLISM
  3. POTASSIUM SUPPLEMENTS [Concomitant]
  4. DIOVAN [Concomitant]
  5. SINGULAIR [Concomitant]

REACTIONS (9)
  - MULTIPLE SCLEROSIS RELAPSE [None]
  - INTERNATIONAL NORMALISED RATIO FLUCTUATION [None]
  - IMPAIRED GASTRIC EMPTYING [None]
  - OROPHARYNGEAL PAIN [None]
  - NYSTAGMUS [None]
  - PULMONARY EMBOLISM [None]
  - DIVERTICULITIS [None]
  - BLOOD PRESSURE INCREASED [None]
  - OPTIC NEURITIS [None]
